FAERS Safety Report 7716486-0 (Version None)
Quarter: 2011Q3

REPORT INFORMATION
  Report Type: 
  Country: None (occurrence: None)
  Receive Date: 20110829
  Receipt Date: 20110825
  Transmission Date: 20111222
  Serious: Yes (Life-Threatening, Hospitalization)
  Sender: FDA-Public Use
  Company Number: DE-B.I. PHARMACEUTICALS,INC./RIDGEFIELD-2010-DE-01360DE

PATIENT
  Sex: Male
  Weight: 85 kg

DRUGS (6)
  1. PRADAXA [Suspect]
     Indication: THROMBOSIS PROPHYLAXIS
     Dosage: 110 MG
     Route: 048
     Dates: start: 20100203, end: 20100204
  2. AMLODIPINE [Concomitant]
     Indication: HYPERTENSION
     Dosage: 10
     Route: 048
  3. PRADAXA [Suspect]
     Indication: HIP ARTHROPLASTY
  4. ASPIRIN [Suspect]
     Indication: MYOCARDIAL INFARCTION
     Dosage: 100
     Route: 048
     Dates: end: 20100202
  5. ENALAPRIL MALEATE [Concomitant]
     Indication: HYPERTENSION
     Dosage: 10
     Route: 048
  6. HCT-BETA [Concomitant]
     Indication: HYPERTENSION
     Dosage: 25
     Route: 048

REACTIONS (5)
  - BLOOD PRESSURE DECREASED [None]
  - IMPAIRED HEALING [None]
  - POST PROCEDURAL HAEMORRHAGE [None]
  - COAGULOPATHY [None]
  - POST PROCEDURAL HAEMATOMA [None]
